FAERS Safety Report 5047956-4 (Version None)
Quarter: 2006Q3

REPORT INFORMATION
  Report Type: 
  Country: None (occurrence: None)
  Receive Date: 20060710
  Receipt Date: 20060710
  Transmission Date: 20061208
  Serious: Yes (Other)
  Sender: FDA-Public Use
  Company Number: None

PATIENT
  Age: 58 Year
  Sex: Female
  Weight: 96.1626 kg

DRUGS (2)
  1. LIPITOR [Suspect]
     Indication: BLOOD CHOLESTEROL INCREASED
     Dosage: 20 MG 1 PER DAY PO
     Route: 048
     Dates: start: 20040820, end: 20060410
  2. CRESTOR 10 MG -TO BE CUT IN HALF GLACO KLINE- [Suspect]
     Indication: BLOOD CHOLESTEROL INCREASED
     Dosage: 5 MG 1 PER DAY PO
     Route: 048
     Dates: start: 20060520, end: 20060523

REACTIONS (15)
  - ARTHRALGIA [None]
  - BACK PAIN [None]
  - BALANCE DISORDER [None]
  - BLOOD CHOLESTEROL INCREASED [None]
  - CONTUSION [None]
  - DEPRESSION [None]
  - FALL [None]
  - FATIGUE [None]
  - HEADACHE [None]
  - MEMORY IMPAIRMENT [None]
  - MIGRAINE [None]
  - MUSCLE ATROPHY [None]
  - MUSCULOSKELETAL CHEST PAIN [None]
  - PAIN IN EXTREMITY [None]
  - SKIN LACERATION [None]
